FAERS Safety Report 21169816 (Version 1)
Quarter: 2022Q3

REPORT INFORMATION
  Report Type: Spontaneous
  Country: CA (occurrence: CA)
  Receive Date: 20220804
  Receipt Date: 20220804
  Transmission Date: 20221026
  Serious: Yes (Other)
  Sender: FDA-Public Use
  Company Number: CA-BAXTER-2022BAX016386

PATIENT
  Age: 63 Year
  Sex: Female

DRUGS (10)
  1. CYCLOPHOSPHAMIDE [Suspect]
     Active Substance: CYCLOPHOSPHAMIDE
     Indication: Human epidermal growth factor receptor negative
     Dosage: DOSAGE FORM: NOT SPECIFIED (ROUTE: UNKNOWN)
     Route: 065
  2. CYCLOPHOSPHAMIDE [Suspect]
     Active Substance: CYCLOPHOSPHAMIDE
     Indication: Hormone receptor positive breast cancer
     Dosage: (ROUTE: UNKNOWN)
     Route: 065
  3. DOXORUBICIN [Suspect]
     Active Substance: DOXORUBICIN
     Indication: Human epidermal growth factor receptor negative
     Dosage: DOSAGE FORM: SOLUTION INTRAVENOUS (ROUTE: UNKNOWN)
     Route: 065
  4. DOXORUBICIN [Suspect]
     Active Substance: DOXORUBICIN
     Indication: Hormone receptor positive breast cancer
     Dosage: DOSAGE FORM: SOLUTION INJECTION (ROUTE: UNKNOWN)
     Route: 065
  5. ANASTROZOLE [Suspect]
     Active Substance: ANASTROZOLE
     Indication: Hormone receptor positive breast cancer
     Dosage: DOSAGE FORM: TABLET (ROUTE: ORAL)
     Route: 048
  6. ANASTROZOLE [Suspect]
     Active Substance: ANASTROZOLE
     Indication: Human epidermal growth factor receptor negative
  7. DOCETAXEL [Suspect]
     Active Substance: DOCETAXEL
     Indication: Human epidermal growth factor receptor negative
     Dosage: DOSAGE FORM: SOLUTION FOR INJECTION (ROUTE: UNKNOWN)
     Route: 065
  8. DOCETAXEL [Suspect]
     Active Substance: DOCETAXEL
     Indication: Hormone receptor positive breast cancer
     Dosage: DOSAGE FORM: NOT SPECIFIED (ROUTE: UNKNOWN)
     Route: 065
  9. TAMOXIFEN [Suspect]
     Active Substance: TAMOXIFEN
     Indication: Hormone receptor positive breast cancer
     Dosage: DOSAGE FORM: TABLET (ROUTE: ORAL)
     Route: 048
  10. TAMOXIFEN [Suspect]
     Active Substance: TAMOXIFEN
     Indication: Human epidermal growth factor receptor negative
     Dosage: DOSAGE FORM: FILM-COATED TABLET (ROUTE: ORAL)
     Route: 048

REACTIONS (1)
  - Breast cancer [Unknown]
